FAERS Safety Report 11935598 (Version 1)
Quarter: 2016Q1

REPORT INFORMATION
  Report Type: Spontaneous
  Country: US (occurrence: US)
  Receive Date: 20160121
  Receipt Date: 20160121
  Transmission Date: 20160526
  Serious: No
  Sender: FDA-Public Use
  Company Number: US-TEVA-573578USA

PATIENT

DRUGS (2)
  1. PROPOFOL. [Suspect]
     Active Substance: PROPOFOL
     Indication: GENERAL ANAESTHESIA
  2. PROPOFOL. [Suspect]
     Active Substance: PROPOFOL
     Indication: SURGERY
     Route: 065

REACTIONS (5)
  - Dysphoria [Unknown]
  - Product substitution issue [Unknown]
  - Abnormal behaviour [Unknown]
  - Drug ineffective [Unknown]
  - Agitation [Recovered/Resolved]
